FAERS Safety Report 9601965 (Version 2)
Quarter: 2013Q4

REPORT INFORMATION
  Report Type: Report from Study
  Country: US (occurrence: US)
  Receive Date: 20131007
  Receipt Date: 20131007
  Transmission Date: 20140711
  Serious: Yes (Death)
  Sender: FDA-Public Use
  Company Number: PHEH2013US005495

PATIENT
  Age: 79 Year
  Sex: Male

DRUGS (1)
  1. AFINITOR [Suspect]
     Indication: NEOPLASM
     Dosage: 10 MG, DAILY
     Route: 048
     Dates: start: 20130509

REACTIONS (4)
  - Death [Fatal]
  - Back pain [Unknown]
  - Gingival pain [Unknown]
  - Nasal discomfort [Unknown]
